FAERS Safety Report 5035282-9 (Version None)
Quarter: 2006Q2

REPORT INFORMATION
  Report Type: 
  Country: None (occurrence: None)
  Receive Date: 20060627
  Receipt Date: 20060620
  Transmission Date: 20061013
  Serious: Yes (Other)
  Sender: FDA-Public Use
  Company Number: PHEH2006US08049

PATIENT
  Age: 85 Year
  Sex: Female

DRUGS (4)
  1. COZAAR [Concomitant]
  2. CLONIDINE [Concomitant]
  3. ZEBETA [Concomitant]
  4. ZELNORM [Suspect]
     Indication: CONSTIPATION
     Dosage: 6 MG, BID
     Route: 048
     Dates: start: 20060615

REACTIONS (1)
  - HYPERTENSION [None]
